FAERS Safety Report 7348011-0 (Version None)
Quarter: 2011Q1

REPORT INFORMATION
  Report Type: 
  Country: None (occurrence: None)
  Receive Date: 20110311
  Receipt Date: 20110302
  Transmission Date: 20110831
  Serious: Yes (Hospitalization, Other)
  Sender: FDA-Public Use
  Company Number: JP-CELGENEUS-087-21880-10080456

PATIENT
  Sex: Male

DRUGS (11)
  1. LENADEX [Suspect]
     Dosage: 40 MILLIGRAM
     Route: 048
     Dates: start: 20100818, end: 20100914
  2. ASTRIC DS [Concomitant]
     Indication: PROPHYLAXIS
     Dosage: .5 GRAM
     Route: 048
     Dates: start: 20100802, end: 20100804
  3. REVLIMID [Suspect]
     Dosage: 5 MILLIGRAM
     Route: 048
     Dates: start: 20100817, end: 20100819
  4. BACTRIM [Concomitant]
     Indication: PROPHYLAXIS
     Dosage: 1 GRAM
     Route: 048
     Dates: start: 20100802, end: 20100804
  5. REVLIMID [Suspect]
     Indication: MULTIPLE MYELOMA
     Dosage: 25 MILLIGRAM
     Route: 048
     Dates: start: 20100802, end: 20100804
  6. REVLIMID [Suspect]
     Dosage: 15 MILLIGRAM
     Route: 048
     Dates: start: 20100824, end: 20100902
  7. ITRIZOLE [Concomitant]
     Indication: INFECTION PROPHYLAXIS
     Dosage: 100 MILLIGRAM
     Route: 048
     Dates: start: 20100802, end: 20100804
  8. WARFARIN [Concomitant]
     Dosage: 1 MILLIGRAM
     Route: 048
     Dates: start: 20100802, end: 20100804
  9. LENADEX [Suspect]
     Indication: MULTIPLE MYELOMA
     Dosage: 40 MILLIGRAM
     Route: 048
     Dates: start: 20100802, end: 20100802
  10. REVLIMID [Suspect]
     Dosage: 10 MILLIGRAM
     Route: 048
     Dates: start: 20100820, end: 20100823
  11. REVLIMID [Suspect]
     Dosage: 20 MILLIGRAM
     Route: 048
     Dates: start: 20100903, end: 20100913

REACTIONS (7)
  - ASPARTATE AMINOTRANSFERASE INCREASED [None]
  - HAEMANGIOMA OF LIVER [None]
  - HAEMOGLOBIN DECREASED [None]
  - SUPRAVENTRICULAR EXTRASYSTOLES [None]
  - ALANINE AMINOTRANSFERASE INCREASED [None]
  - C-REACTIVE PROTEIN INCREASED [None]
  - NEUTROPHIL COUNT DECREASED [None]
